FAERS Safety Report 6516777-5 (Version None)
Quarter: 2009Q4

REPORT INFORMATION
  Report Type: 
  Country: None (occurrence: None)
  Receive Date: 20091223
  Receipt Date: 20091217
  Transmission Date: 20100525
  Serious: Yes (Other)
  Sender: FDA-Public Use
  Company Number: US-JNJFOC-20091206119

PATIENT
  Age: 16 Month
  Sex: Male
  Weight: 10.43 kg

DRUGS (11)
  1. TYLENOL (CAPLET) [Suspect]
     Indication: TEETHING
     Route: 048
  2. TYLENOL (CAPLET) [Suspect]
     Indication: PYREXIA
     Route: 048
  3. TYLENOL (CAPLET) [Suspect]
     Indication: TEETHING
     Route: 048
  4. TYLENOL (CAPLET) [Suspect]
     Indication: PYREXIA
     Route: 048
  5. TYLENOL (CAPLET) [Suspect]
     Route: 048
  6. TYLENOL (CAPLET) [Suspect]
     Indication: DRUG USE FOR UNKNOWN INDICATION
     Route: 048
  7. PREVACID [Concomitant]
     Indication: GASTROOESOPHAGEAL REFLUX DISEASE
  8. MULTI-VITAMINS [Concomitant]
  9. PREDNISONE [Concomitant]
     Indication: DYSPNOEA
  10. ASTHMA NEBULIZER NOS [Concomitant]
     Indication: ASTHMA
  11. MANY OTHER UNSPECIFIED MEDICATIONS [Concomitant]

REACTIONS (2)
  - CONDITION AGGRAVATED [None]
  - TRANSMISSION OF AN INFECTIOUS AGENT VIA A MEDICINAL PRODUCT [None]
